FAERS Safety Report 8326386-3 (Version None)
Quarter: 2012Q2

REPORT INFORMATION
  Report Type: 
  Country: None (occurrence: None)
  Receive Date: 20120501
  Receipt Date: 20120424
  Transmission Date: 20120825
  Serious: Yes (Hospitalization)
  Sender: FDA-Public Use
  Company Number: US-ALEXION-A201200754

PATIENT
  Sex: Female

DRUGS (10)
  1. ZOFRAN [Concomitant]
     Dosage: UNK, PRN
  2. SOLIRIS [Suspect]
     Dosage: 600 MG, Q OTHER DAY WITH PLASMAPHERESIS
     Dates: start: 20120401
  3. PREDNISONE [Concomitant]
     Dosage: UNK, INTERMITTENT
  4. ZANTAC [Concomitant]
     Dosage: UNK, USED WITH PREDNISONE
  5. ZYRTEC [Concomitant]
     Indication: HYPERSENSITIVITY
     Dosage: UNK
  6. TYLENOL (CAPLET) [Concomitant]
     Dosage: UNK, PRN
  7. METHOTREXATE [Concomitant]
     Indication: LYMPHOMA
     Dosage: UNK, INTERMITTENT
  8. VINCRISTINE [Concomitant]
     Indication: LYMPHOMA
     Dosage: UNK, INTERMITTENT
  9. MERCAPTOPURINE [Concomitant]
     Indication: LYMPHOMA
     Dosage: UNK, INTERMITTENT
  10. SOLIRIS [Suspect]
     Indication: HAEMOLYTIC URAEMIC SYNDROME
     Dosage: 900 MG, QW
     Route: 042
     Dates: start: 20120411

REACTIONS (1)
  - CONVULSION [None]
